FAERS Safety Report 5387318-3 (Version None)
Quarter: 2007Q3

REPORT INFORMATION
  Report Type: 
  Country: None (occurrence: None)
  Receive Date: 20070716
  Receipt Date: 20070706
  Transmission Date: 20080115
  Serious: Yes (Other)
  Sender: FDA-Public Use
  Company Number: PHBS2007JP11021

PATIENT
  Age: 12 Year
  Sex: Male

DRUGS (2)
  1. CYCLOSPORINE [Suspect]
     Indication: NEPHROTIC SYNDROME
     Route: 065
  2. PREDONINE [Concomitant]
     Indication: NEPHROTIC SYNDROME
     Route: 065

REACTIONS (9)
  - DISEASE RECURRENCE [None]
  - HIP SWELLING [None]
  - NEPHROPATHY TOXIC [None]
  - NEPHROTIC SYNDROME [None]
  - PERITONEAL DIALYSIS [None]
  - PROTEIN URINE PRESENT [None]
  - RENAL FAILURE ACUTE [None]
  - SHOCK [None]
  - VENA CAVA THROMBOSIS [None]
